FAERS Safety Report 22996705 (Version 2)
Quarter: 2024Q1

REPORT INFORMATION
  Report Type: Spontaneous
  Country: JP (occurrence: JP)
  Receive Date: 20230928
  Receipt Date: 20240109
  Transmission Date: 20240409
  Serious: Yes (Death, Other)
  Sender: FDA-Public Use
  Company Number: US-Coherus Biosciences, Inc.-2023-COH-JP000469

PATIENT

DRUGS (4)
  1. ADALIMUMAB [Suspect]
     Active Substance: ADALIMUMAB\ISOPROPYL ALCOHOL
  2. MESALAMINE [Concomitant]
     Active Substance: MESALAMINE
     Indication: Inflammatory bowel disease
  3. METRONIDAZOLE [Concomitant]
     Active Substance: METRONIDAZOLE
     Indication: Inflammatory bowel disease
  4. INFLIXIMAB [Concomitant]
     Active Substance: INFLIXIMAB
     Indication: Inflammatory bowel disease

REACTIONS (8)
  - Circulatory collapse [Fatal]
  - Hypoalbuminaemia [Fatal]
  - Systemic infection [Unknown]
  - Septic shock [Unknown]
  - Disease progression [Unknown]
  - Vitamin C deficiency [Unknown]
  - Large intestinal ulcer [Unknown]
  - Malnutrition [Unknown]
